FAERS Safety Report 20711601 (Version 4)
Quarter: 2022Q4

REPORT INFORMATION
  Report Type: Spontaneous
  Country: US (occurrence: US)
  Receive Date: 20220414
  Receipt Date: 20221024
  Transmission Date: 20230112
  Serious: Yes (Other)
  Sender: FDA-Public Use
  Company Number: US-BRISTOL-MYERS SQUIBB COMPANY-2022-016568

PATIENT
  Age: 71 Year
  Sex: Male

DRUGS (3)
  1. REVLIMID [Suspect]
     Active Substance: LENALIDOMIDE
     Indication: Plasma cell myeloma
     Dosage: 1 DF : 1 CAPSULE?FREQ : FOR 21 DAYS, THEN 7 DAYS OFF
     Route: 048
     Dates: start: 20160620
  2. REVLIMID [Suspect]
     Active Substance: LENALIDOMIDE
     Route: 048
  3. REVLIMID [Suspect]
     Active Substance: LENALIDOMIDE
     Dosage: TAKE 1 CAPSULE BY MOUTH DAILY FOR 21 DAYS THEN 7 DAYS OFF.
     Route: 048
     Dates: start: 20180919

REACTIONS (4)
  - Vertigo [Unknown]
  - Sinus disorder [Unknown]
  - Infection [Unknown]
  - Product dose omission issue [Unknown]
